FAERS Safety Report 19813259 (Version 1)
Quarter: 2021Q3

REPORT INFORMATION
  Report Type: Spontaneous
  Country: US (occurrence: US)
  Receive Date: 20210909
  Receipt Date: 20210909
  Transmission Date: 20211014
  Serious: Yes (Other)
  Sender: FDA-Public Use
  Company Number: None

PATIENT
  Age: 46 Year
  Sex: Female

DRUGS (2)
  1. BOTOX [Suspect]
     Active Substance: ONABOTULINUMTOXINA
     Indication: FIBROMYALGIA
     Dosage: ?          OTHER FREQUENCY:EVERY 3 MONTHS;?
  2. LEVOTHROXIN [Concomitant]

REACTIONS (4)
  - Thyroidectomy [None]
  - Allergic reaction to excipient [None]
  - Urticaria [None]
  - Pruritus [None]

NARRATIVE: CASE EVENT DATE: 20210421
